FAERS Safety Report 20013738 (Version 1)
Quarter: 2021Q4

REPORT INFORMATION
  Report Type: Spontaneous
  Country: GB (occurrence: GB)
  Receive Date: 20211029
  Receipt Date: 20211029
  Transmission Date: 20220303
  Serious: Yes (Hospitalization, Other)
  Sender: FDA-Public Use
  Company Number: None

PATIENT
  Age: 94 Year
  Sex: Female

DRUGS (15)
  1. MEROPENEM [Suspect]
     Active Substance: MEROPENEM
     Dosage: 1 G, 3X/DAY (EVERY 8 HOURS)
  2. PIPERACILLIN SODIUM\TAZOBACTAM SODIUM [Suspect]
     Active Substance: PIPERACILLIN SODIUM\TAZOBACTAM SODIUM
     Dosage: 4.5 G, 3X/DAY (5 DAYS AND THEN FOR A FURTHER 1 DAY A FEW WEEKS LATER)
  3. AMOXICILLIN [Suspect]
     Active Substance: AMOXICILLIN
     Indication: Tooth abscess
     Dosage: 1 G, 3X/DAY
     Route: 042
  4. PRAVASTATIN [Suspect]
     Active Substance: PRAVASTATIN
     Dosage: 40 MG, 1X/DAY (AT NIGHT)
  5. ALLOPURINOL [Concomitant]
     Active Substance: ALLOPURINOL
     Dosage: 100 MG, 1X/DAY
  6. ASPIRIN [Concomitant]
     Active Substance: ASPIRIN
     Dosage: 75 MG, 1X/DAY
  7. ATENOLOL [Concomitant]
     Active Substance: ATENOLOL
     Indication: Hypertension
     Dosage: 25 MG, 1X/DAY
  8. CIPROFLOXACIN [Concomitant]
     Active Substance: CIPROFLOXACIN
     Dosage: 500 MG, 2X/DAY
  9. DICLOFENAC DIETHYLAMINE [Concomitant]
     Active Substance: DICLOFENAC DIETHYLAMINE
     Dosage: UNK
  10. FOLIC ACID [Concomitant]
     Active Substance: FOLIC ACID
     Dosage: 5 MG, 1X/DAY
  11. GENTAMICIN [Concomitant]
     Active Substance: GENTAMICIN
     Dosage: 220 MG (EVERY 36 HOURS)
     Route: 042
  12. LEVOTHYROXINE [Concomitant]
     Active Substance: LEVOTHYROXINE
     Dosage: 50 UG, 1X/DAY
  13. LORATADINE [Concomitant]
     Active Substance: LORATADINE
     Dosage: 10 MG, 1X/DAY
  14. METRONIDAZOLE [Concomitant]
     Active Substance: METRONIDAZOLE
     Dosage: 500 MG, 3X/DAY
     Route: 042
  15. TRAMADOL [Concomitant]
     Active Substance: TRAMADOL
     Dosage: 50 MG, 1X/DAY (EVERY MORNING)

REACTIONS (7)
  - Drug-induced liver injury [Not Recovered/Not Resolved]
  - Biliary sepsis [Unknown]
  - Liver function test abnormal [Unknown]
  - Pyrexia [Unknown]
  - Abdominal pain [Unknown]
  - Lung consolidation [Unknown]
  - Pleural effusion [Unknown]
